FAERS Safety Report 16277791 (Version 1)
Quarter: 2019Q2

REPORT INFORMATION
  Report Type: Other
  Country: US (occurrence: US)
  Receive Date: 20190506
  Receipt Date: 20190506
  Transmission Date: 20190711
  Serious: No
  Sender: FDA-Public Use
  Company Number: US-AMAG PHARMACEUTICALS, INC.-AMAG201902400

PATIENT
  Age: 51 Year
  Sex: Female
  Weight: 69.92 kg

DRUGS (1)
  1. INTRAROSA [Suspect]
     Active Substance: PRASTERONE
     Indication: DYSPAREUNIA
     Route: 067
     Dates: start: 201902

REACTIONS (2)
  - Product administration error [Unknown]
  - Underdose [Unknown]

NARRATIVE: CASE EVENT DATE: 201904
